FAERS Safety Report 5041817-2 (Version None)
Quarter: 2006Q2

REPORT INFORMATION
  Report Type: 
  Country: None (occurrence: None)
  Receive Date: 20060627
  Receipt Date: 20060620
  Transmission Date: 20061013
  Serious: Yes (Other)
  Sender: FDA-Public Use
  Company Number: 2006AL001546

PATIENT
  Sex: Male

DRUGS (1)
  1. BACITRACIN ZINC [Suspect]
     Indication: SKIN DISORDER
     Dates: start: 20060606, end: 20060607

REACTIONS (2)
  - PAIN [None]
  - SICKLE CELL ANAEMIA WITH CRISIS [None]
